FAERS Safety Report 12756233 (Version 1)
Quarter: 2016Q3

REPORT INFORMATION
  Report Type: Report from Study
  Country: GB (occurrence: GB)
  Receive Date: 20160916
  Receipt Date: 20160916
  Transmission Date: 20161109
  Serious: Yes (Other)
  Sender: FDA-Public Use
  Company Number: PHFR2016GB007304

PATIENT
  Sex: Female

DRUGS (2)
  1. GILENYA [Suspect]
     Active Substance: FINGOLIMOD HYDROCHLORIDE
     Indication: MULTIPLE SCLEROSIS
     Dosage: 0.5 MG, QD
     Route: 048
     Dates: start: 2007, end: 201112
  2. GILENYA [Suspect]
     Active Substance: FINGOLIMOD HYDROCHLORIDE
     Dosage: 0.5 MG, QD
     Route: 048
     Dates: start: 20160425

REACTIONS (14)
  - Optic neuritis [Unknown]
  - Immunosuppression [Unknown]
  - Dysphonia [Unknown]
  - Maternal exposure before pregnancy [Unknown]
  - Ocular ischaemic syndrome [Unknown]
  - Neutropenia [Unknown]
  - Interstitial lung disease [Unknown]
  - Pulmonary function test decreased [Unknown]
  - Mobility decreased [Unknown]
  - Carbon monoxide diffusing capacity decreased [Unknown]
  - Depression [Unknown]
  - Balance disorder [Unknown]
  - Multiple sclerosis relapse [Unknown]
  - Lymphopenia [Unknown]
